FAERS Safety Report 8519512-4 (Version None)
Quarter: 2012Q3

REPORT INFORMATION
  Report Type: 
  Country: None (occurrence: None)
  Receive Date: 20120718
  Receipt Date: 20120705
  Transmission Date: 20120928
  Serious: No
  Sender: FDA-Public Use
  Company Number: US-ASTRAZENECA-2012SE28195

PATIENT
  Age: 38 Year
  Sex: Male

DRUGS (1)
  1. NEXIUM [Suspect]
     Route: 048

REACTIONS (5)
  - OFF LABEL USE [None]
  - GASTROOESOPHAGEAL REFLUX DISEASE [None]
  - DYSPEPSIA [None]
  - BACK INJURY [None]
  - INTENTIONAL DRUG MISUSE [None]
